FAERS Safety Report 8186759-9 (Version None)
Quarter: 2012Q1

REPORT INFORMATION
  Report Type: 
  Country: None (occurrence: None)
  Receive Date: 20120306
  Receipt Date: 20120306
  Transmission Date: 20120608
  Serious: Yes (Other)
  Sender: FDA-Public Use
  Company Number: None

PATIENT
  Age: 61 Year
  Sex: Male
  Weight: 74.842 kg

DRUGS (1)
  1. CHANTIX [Suspect]
     Indication: TOBACCO USER
     Dosage: PER MFGR RECOMMENDATION
     Route: 048
     Dates: start: 20101101, end: 20110201

REACTIONS (3)
  - SUICIDAL IDEATION [None]
  - MOOD SWINGS [None]
  - IRRITABILITY [None]
